FAERS Safety Report 23156117 (Version 2)
Quarter: 2024Q1

REPORT INFORMATION
  Report Type: Spontaneous
  Country: KR (occurrence: KR)
  Receive Date: 20231107
  Receipt Date: 20240111
  Transmission Date: 20240409
  Serious: Yes (Death, Hospitalization, Other)
  Sender: FDA-Public Use
  Company Number: KR-009507513-2311KOR001842

PATIENT
  Age: 63 Year
  Sex: Female
  Weight: 54.1 kg

DRUGS (3)
  1. PREVYMIS [Suspect]
     Active Substance: LETERMOVIR
     Indication: Antiviral prophylaxis
     Dosage: ONCE DAILY (QD); STRENGTH: 480 MG
     Route: 048
     Dates: start: 20210708, end: 20210915
  2. PROGRAF [Concomitant]
     Active Substance: TACROLIMUS
     Indication: Prophylaxis against graft versus host disease
     Dosage: 4 MILLIGRAM, BID
     Route: 048
     Dates: start: 20210704
  3. ZOYLEX [ACICLOVIR] [Concomitant]
     Indication: Infection prophylaxis
     Dosage: 400 MILLIGRAM, QD
     Route: 048
     Dates: start: 20210704

REACTIONS (2)
  - Pyrexia [Fatal]
  - Oral candidiasis [Fatal]

NARRATIVE: CASE EVENT DATE: 20211130
